FAERS Safety Report 5421190-8 (Version None)
Quarter: 2007Q3

REPORT INFORMATION
  Report Type: 
  Country: None (occurrence: None)
  Receive Date: 20070719
  Receipt Date: 20070618
  Transmission Date: 20080115
  Serious: Yes (Other)
  Sender: FDA-Public Use
  Company Number: HQWYE692419JUN07

PATIENT
  Age: 16 Year
  Sex: Female
  Weight: 77.18 kg

DRUGS (2)
  1. ADVIL PM [Suspect]
     Indication: INSOMNIA
     Dosage: 2 TABLET 1X PER 1 DAY, ORAL
     Route: 048
     Dates: start: 20070616, end: 20070617
  2. ADVIL PM [Suspect]
     Indication: PAIN IN EXTREMITY
     Dosage: 2 TABLET 1X PER 1 DAY, ORAL
     Route: 048
     Dates: start: 20070616, end: 20070617

REACTIONS (1)
  - CHEST PAIN [None]
